FAERS Safety Report 24692487 (Version 1)
Quarter: 2024Q4

REPORT INFORMATION
  Report Type: Report from Study
  Country: IN (occurrence: IN)
  Receive Date: 20241203
  Receipt Date: 20241203
  Transmission Date: 20250115
  Serious: Yes (Other)
  Sender: INCYTE
  Company Number: IN-002147023-NVSC2024IN228064

PATIENT

DRUGS (1)
  1. RUXOLITINIB [Suspect]
     Active Substance: RUXOLITINIB
     Indication: Primary myelofibrosis
     Dosage: 10 MG, BID
     Route: 048
     Dates: start: 20241018

REACTIONS (7)
  - Cytopenia [Unknown]
  - Pyrexia [Unknown]
  - Hypertension [Unknown]
  - Hypothyroidism [Unknown]
  - Night sweats [Unknown]
  - Weight decreased [Unknown]
  - Splenomegaly [Unknown]
